FAERS Safety Report 9915930 (Version 1)
Quarter: 2014Q1

REPORT INFORMATION
  Report Type: Spontaneous
  Country: FI (occurrence: FI)
  Receive Date: 20140221
  Receipt Date: 20140221
  Transmission Date: 20141002
  Serious: Yes (Disabling)
  Sender: FDA-Public Use
  Company Number: FI-009507513-1402FIN007629

PATIENT
  Age: 70 Year
  Sex: Male

DRUGS (8)
  1. EZETROL [Suspect]
     Indication: BLOOD CHOLESTEROL
     Dosage: UNK
  2. EZETROL [Suspect]
     Dosage: 10 MG, QD
     Route: 048
     Dates: start: 20130812
  3. AMLODIPINE [Suspect]
     Indication: HYPERTENSION
     Dosage: 5 MG, QD
     Route: 048
     Dates: start: 20140108
  4. BISOPROLOL [Concomitant]
     Indication: HYPERTENSION
     Dosage: 5 MG, BID
     Route: 048
     Dates: start: 20130816
  5. ATORVASTATIN [Concomitant]
     Indication: BLOOD CHOLESTEROL
     Dosage: 20 MG, QD
     Route: 048
     Dates: start: 20130816
  6. CELLCEPT [Concomitant]
     Indication: RENAL FAILURE
     Dosage: 500 MG, QD
     Route: 048
     Dates: start: 20130701
  7. D3-VITAMIN [Concomitant]
     Dosage: 10 MICROGRAM, QD
     Route: 048
     Dates: start: 20111213
  8. NEXIUM [Concomitant]
     Indication: GASTRIC DISORDER
     Dosage: L X1-2, 20-40 MG
     Route: 048
     Dates: start: 20130816

REACTIONS (4)
  - Depression [Not Recovered/Not Resolved]
  - Limb discomfort [Not Recovered/Not Resolved]
  - Cardiovascular disorder [Not Recovered/Not Resolved]
  - Impaired work ability [Not Recovered/Not Resolved]
